FAERS Safety Report 14289054 (Version 3)
Quarter: 2018Q2

REPORT INFORMATION
  Report Type: Spontaneous
  Country: JP (occurrence: JP)
  Receive Date: 20171214
  Receipt Date: 20180413
  Transmission Date: 20180711
  Serious: Yes (Death, Hospitalization, Other)
  Sender: FDA-Public Use
  Company Number: JP-PFIZER INC-2017532573

PATIENT
  Age: 64 Year
  Sex: Male
  Weight: 45 kg

DRUGS (12)
  1. SAMSCA [Concomitant]
     Active Substance: TOLVAPTAN
     Dosage: 7.5 MG, DAILY
  2. SPIRONOLACTONE. [Concomitant]
     Active Substance: SPIRONOLACTONE
     Dosage: 50 MG, DAILY
  3. LANSOPRAZOLE. [Concomitant]
     Active Substance: LANSOPRAZOLE
     Dosage: 15 MG, DAILY
  4. AMINOVACT [Concomitant]
     Dosage: 9.5 G, DAILY
  5. BIO-THREE [Concomitant]
     Active Substance: HERBALS
     Dosage: 6 DF, DAILY
  6. STERONEMA [Concomitant]
     Active Substance: BETAMETHASONE SODIUM PHOSPHATE
     Indication: COLITIS
     Dosage: UNK
  7. BROTIZOLAM [Concomitant]
     Active Substance: BROTIZOLAM
     Dosage: 0.25 MG, DAILY
  8. ALENDRONATE [Concomitant]
     Active Substance: ALENDRONATE SODIUM
     Dosage: 35 MG, WEEKLY
  9. PREDONINE [Concomitant]
     Active Substance: PREDNISOLONE
     Dosage: 5 MG, DAILY
  10. SUTENT [Suspect]
     Active Substance: SUNITINIB MALATE
     Indication: RENAL CELL CARCINOMA
     Dosage: 25 MG, CYCLIC (2 WEEK ON AND 1 WEEK OFF)
     Route: 048
     Dates: start: 20171027, end: 20171109
  11. AMINOLEBAN EN [Concomitant]
     Active Substance: UNSPECIFIED INGREDIENT
     Dosage: 50 G, DAILY
  12. MESALAZINE [Concomitant]
     Active Substance: MESALAMINE
     Dosage: 1500 MG, DAILY

REACTIONS (9)
  - Alanine aminotransferase increased [Not Recovered/Not Resolved]
  - Hyperkalaemia [Fatal]
  - Renal impairment [Fatal]
  - Acute kidney injury [Fatal]
  - Aspartate aminotransferase increased [Not Recovered/Not Resolved]
  - Dehydration [Unknown]
  - Decreased appetite [Unknown]
  - Multiple organ dysfunction syndrome [Fatal]
  - Diarrhoea [Unknown]

NARRATIVE: CASE EVENT DATE: 201711
